FAERS Safety Report 5065991-7 (Version None)
Quarter: 2006Q3

REPORT INFORMATION
  Report Type: 
  Country: None (occurrence: None)
  Receive Date: 20060731
  Receipt Date: 20060731
  Transmission Date: 20061208
  Serious: Yes (Other)
  Sender: FDA-Public Use
  Company Number: None

PATIENT
  Sex: Female
  Weight: 71.2147 kg

DRUGS (2)
  1. FLUOXETINE [Suspect]
     Dosage: 20 MG O.D.  BY MOUTH
     Route: 048
     Dates: start: 20050101
  2. PROZAC [Suspect]
     Dosage: 20 MG O.D.  BY MOUTH
     Route: 048

REACTIONS (4)
  - DYSPEPSIA [None]
  - PALPITATIONS [None]
  - PSYCHOMOTOR HYPERACTIVITY [None]
  - THERAPEUTIC RESPONSE UNEXPECTED WITH DRUG SUBSTITUTION [None]
